FAERS Safety Report 5602625-4 (Version None)
Quarter: 2008Q1

REPORT INFORMATION
  Report Type: 
  Country: None (occurrence: None)
  Receive Date: 20080125
  Receipt Date: 20080114
  Transmission Date: 20080703
  Serious: Yes (Other)
  Sender: FDA-Public Use
  Company Number: MX-ROCHE-541827

PATIENT
  Age: 44 Year
  Sex: Female
  Weight: 78 kg

DRUGS (8)
  1. XENICAL [Suspect]
     Indication: OVERWEIGHT
     Route: 048
     Dates: start: 20080112, end: 20080114
  2. SYMBYAX [Concomitant]
     Indication: DEPRESSION
     Dosage: FREQUENCY REPORTED AS EVERY DAY (QD).
     Route: 048
     Dates: start: 20071201
  3. EFFEXOR [Concomitant]
     Indication: DEPRESSION
     Dosage: FREQUENCY REPORTED AS EVERY DAY (QD).
     Route: 048
     Dates: start: 20071101
  4. SINOGAN [Concomitant]
     Indication: INSOMNIA
     Route: 048
     Dates: start: 20071101
  5. CLIANE [Concomitant]
     Dosage: FRQUENCY REPORTED AS QD (EVERY DAY).
     Route: 048
     Dates: start: 20030101
  6. CLIMENE [Concomitant]
     Route: 048
     Dates: start: 20080112, end: 20080116
  7. TAFIL [Concomitant]
     Route: 048
     Dates: start: 20071101
  8. 1 CONCOMITANT DRUG [Concomitant]
     Dosage: DRUG REPORTED AS MAGNESIUM VALPROATE (ATEMPERATOR).
     Route: 048
     Dates: start: 20071101

REACTIONS (1)
  - OEDEMA [None]
